FAERS Safety Report 23932191 (Version 1)
Quarter: 2024Q2

REPORT INFORMATION
  Report Type: Spontaneous
  Country: MA (occurrence: MA)
  Receive Date: 20240603
  Receipt Date: 20240603
  Transmission Date: 20240716
  Serious: Yes (Death, Life-Threatening, Hospitalization, Other)
  Sender: FDA-Public Use
  Company Number: MA-CPL-004239

PATIENT
  Age: 26 Year
  Sex: Female

DRUGS (1)
  1. METRONIDAZOLE [Suspect]
     Active Substance: METRONIDAZOLE
     Indication: Diarrhoea
     Dosage: OCCASIONALLY (500 MG, 3 TIMES DAILY)

REACTIONS (4)
  - Toxic encephalopathy [Fatal]
  - Pneumonia aspiration [Fatal]
  - Respiratory distress [Fatal]
  - Septic shock [Fatal]
